FAERS Safety Report 17313615 (Version 1)
Quarter: 2020Q1

REPORT INFORMATION
  Report Type: Spontaneous
  Country: US (occurrence: US)
  Receive Date: 20200107
  Receipt Date: 20200107
  Transmission Date: 20200409
  Serious: Yes (Hospitalization)
  Sender: FDA-Public Use
  Company Number: None

PATIENT
  Age: 27 Year
  Sex: Male

DRUGS (1)
  1. MARIJUANA OIL VAPING [Suspect]
     Active Substance: CANNABIS SATIVA SEED OIL\HERBALS

REACTIONS (2)
  - Respiratory disorder [None]
  - Pneumonitis [None]
